FAERS Safety Report 5597541-0 (Version None)
Quarter: 2008Q1

REPORT INFORMATION
  Report Type: 
  Country: None (occurrence: None)
  Receive Date: 20080121
  Receipt Date: 20080109
  Transmission Date: 20080703
  Serious: Yes (Other)
  Sender: FDA-Public Use
  Company Number: GB-ROCHE-540571

PATIENT
  Age: 51 Year
  Sex: Male
  Weight: 127 kg

DRUGS (2)
  1. ORLISTAT [Suspect]
     Indication: OBESITY
     Route: 048
     Dates: start: 20070719
  2. BENDROFLUMETHIAZIDE [Concomitant]
     Route: 048
     Dates: start: 20020101

REACTIONS (3)
  - CELLULITIS [None]
  - HYPERTENSION [None]
  - SEPSIS [None]
